FAERS Safety Report 4822001-1 (Version None)
Quarter: 2005Q4

REPORT INFORMATION
  Report Type: 
  Country: None (occurrence: None)
  Receive Date: 20051107
  Receipt Date: 20051031
  Transmission Date: 20060501
  Serious: Yes (Hospitalization)
  Sender: FDA-Public Use
  Company Number: US-JNJFOC-20051100330

PATIENT
  Age: 1 Year
  Sex: Female
  Weight: 8.1 kg

DRUGS (2)
  1. ACETAMINOPHEN [Suspect]
     Route: 048
  2. ACETAMINOPHEN [Suspect]
     Indication: DRUG USE FOR UNKNOWN INDICATION
     Dosage: 1680 MG, ORAL; }8 HR {=24 HR
     Route: 048

REACTIONS (4)
  - ACCIDENTAL OVERDOSE [None]
  - INAPPROPRIATE SCHEDULE OF DRUG ADMINISTRATION [None]
  - LIVER FUNCTION TEST ABNORMAL [None]
  - PYREXIA [None]
